FAERS Safety Report 11094784 (Version 1)
Quarter: 2015Q2

REPORT INFORMATION
  Report Type: Spontaneous
  Country: FR (occurrence: FR)
  Receive Date: 20150506
  Receipt Date: 20150506
  Transmission Date: 20150821
  Serious: Yes (Hospitalization)
  Sender: FDA-Public Use
  Company Number: FR-ELI_LILLY_AND_COMPANY-FR201504009821

PATIENT
  Age: 77 Year
  Sex: Female

DRUGS (11)
  1. BIPRETERAX                         /01421201/ [Concomitant]
     Active Substance: INDAPAMIDE\PERINDOPRIL ERBUMINE
  2. INEXIUM                            /01479302/ [Concomitant]
     Active Substance: ESOMEPRAZOLE MAGNESIUM
     Dosage: 40 MG, UNK
  3. TAHOR [Concomitant]
     Active Substance: ATORVASTATIN CALCIUM
     Dosage: 10 MG, UNK
  4. RILMENIDINE [Concomitant]
     Active Substance: RILMENIDINE
     Dosage: 1 MG, UNK
  5. HUMALOG [Suspect]
     Active Substance: INSULIN LISPRO
     Indication: PRODUCT USED FOR UNKNOWN INDICATION
     Dosage: 28 U, QD
     Route: 058
  6. LANTUS [Suspect]
     Active Substance: INSULIN GLARGINE
     Indication: PRODUCT USED FOR UNKNOWN INDICATION
     Dosage: 16 U, QD
     Route: 058
  7. MOTILIUM [Concomitant]
     Active Substance: DOMPERIDONE
     Dosage: UNK, PRN
  8. OXYCONTIN [Concomitant]
     Active Substance: OXYCODONE HYDROCHLORIDE
     Dosage: 10 MG, QD
  9. OXYNORM [Concomitant]
     Active Substance: OXYCODONE HYDROCHLORIDE
  10. LACTULOSE. [Concomitant]
     Active Substance: LACTULOSE
     Dosage: UNK, PRN
  11. LEVOTHYROX [Concomitant]
     Active Substance: LEVOTHYROXINE
     Dosage: 50 UG, UNK

REACTIONS (4)
  - Burns third degree [Unknown]
  - Hypoglycaemia [Recovered/Resolved]
  - Malaise [Unknown]
  - Hypoglycaemia [Recovered/Resolved]

NARRATIVE: CASE EVENT DATE: 20150207
